FAERS Safety Report 6152091-8 (Version None)
Quarter: 2009Q2

REPORT INFORMATION
  Report Type: 
  Country: None (occurrence: None)
  Receive Date: 20090409
  Receipt Date: 20090409
  Transmission Date: 20091009
  Serious: Yes (Other)
  Sender: FDA-Public Use
  Company Number: None

PATIENT
  Weight: 79.8331 kg

DRUGS (2)
  1. CRESTOR 10 MG ASTRA ZANECA [Suspect]
     Indication: BLOOD CHOLESTEROL INCREASED
     Dosage: 1 TABLET DAILY PO
     Route: 048
     Dates: start: 20081212, end: 20090211
  2. ZETIA [Suspect]
     Indication: BLOOD TRIGLYCERIDES INCREASED
     Dosage: 1 TABLET DAILY PO
     Route: 048
     Dates: start: 20080611, end: 20080901

REACTIONS (3)
  - ARTHRALGIA [None]
  - DEPRESSION [None]
  - MYALGIA [None]
